FAERS Safety Report 7562206-2 (Version None)
Quarter: 2011Q2

REPORT INFORMATION
  Report Type: 
  Country: None (occurrence: None)
  Receive Date: 20110620
  Receipt Date: 20110620
  Transmission Date: 20111010
  Serious: Yes (Other)
  Sender: FDA-Public Use
  Company Number: None

PATIENT
  Age: 48 Year
  Sex: Male
  Weight: 109.7705 kg

DRUGS (2)
  1. AZITHROMYCIN [Suspect]
     Indication: RESPIRATORY TRACT INFECTION
     Dosage: 2 TABS -500MG TOTAL- FIRST DAY PO
     Route: 048
     Dates: start: 20110420, end: 20110421
  2. OMEPRAZOLE [Concomitant]

REACTIONS (1)
  - INSOMNIA [None]
